FAERS Safety Report 7272909-5 (Version None)
Quarter: 2011Q1

REPORT INFORMATION
  Report Type: 
  Country: None (occurrence: None)
  Receive Date: 20110203
  Receipt Date: 20110124
  Transmission Date: 20110831
  Serious: Yes (Hospitalization)
  Sender: FDA-Public Use
  Company Number: GR-SANOFI-AVENTIS-2011SA004571

PATIENT
  Age: 82 Year
  Sex: Male

DRUGS (6)
  1. APROVEL [Concomitant]
     Indication: HYPERTENSION
  2. SALOSPIR [Suspect]
     Route: 065
     Dates: end: 20110103
  3. CLEXANE [Suspect]
     Route: 065
     Dates: start: 20110107
  4. PLAVIX [Suspect]
     Route: 048
     Dates: start: 20100101, end: 20110107
  5. SEROPRAM [Concomitant]
  6. GLUCOPHAGE [Concomitant]

REACTIONS (2)
  - HAEMATOCRIT DECREASED [None]
  - MYOCARDIAL INFARCTION [None]
